FAERS Safety Report 10017078 (Version 2)
Quarter: 2014Q1

REPORT INFORMATION
  Report Type: Spontaneous
  Country: US (occurrence: US)
  Receive Date: 20140318
  Receipt Date: 20140326
  Transmission Date: 20141002
  Serious: Yes (Hospitalization)
  Sender: FDA-Public Use
  Company Number: US-BIOGENIDEC-2014BI022791

PATIENT
  Age: 51 Year
  Sex: Female

DRUGS (14)
  1. TECFIDERA [Suspect]
     Indication: MULTIPLE SCLEROSIS
     Route: 048
     Dates: start: 201304
  2. TECFIDERA [Suspect]
     Indication: MULTIPLE SCLEROSIS
     Route: 048
     Dates: start: 201304
  3. BRIMONIDINE TARTRATE [Concomitant]
  4. COMPAZINE [Concomitant]
  5. ENABLEX [Concomitant]
  6. LAMISIL [Concomitant]
  7. LIPITOR [Concomitant]
  8. MACROBID [Concomitant]
  9. METOLAZONE [Concomitant]
  10. POTASSIUM CHLORIDE CRYS ER [Concomitant]
  11. PROTONIX [Concomitant]
  12. SPIRONOLACTONE [Concomitant]
  13. TRAVATAN Z [Concomitant]
  14. WARFARIN SODIUM [Concomitant]

REACTIONS (2)
  - Joint injury [Unknown]
  - Fall [Recovered/Resolved]
